FAERS Safety Report 5892958-9 (Version None)
Quarter: 2008Q3

REPORT INFORMATION
  Report Type: 
  Country: None (occurrence: None)
  Receive Date: 20080922
  Receipt Date: 20080922
  Transmission Date: 20090109
  Serious: Yes (Other)
  Sender: FDA-Public Use
  Company Number: None

PATIENT
  Age: 57 Year
  Sex: Female
  Weight: 98.4306 kg

DRUGS (1)
  1. CELLCEPT [Suspect]
     Indication: PROPHYLAXIS AGAINST TRANSPLANT REJECTION
     Dosage: 250 MG 2 PO
     Route: 048
     Dates: start: 20060829, end: 20080919

REACTIONS (7)
  - ATRIOVENTRICULAR BLOCK COMPLETE [None]
  - CLUMSINESS [None]
  - DEPRESSION [None]
  - FALL [None]
  - HYPOAESTHESIA [None]
  - NEUROLOGICAL SYMPTOM [None]
  - VISION BLURRED [None]
